FAERS Safety Report 21464663 (Version 1)
Quarter: 2022Q4

REPORT INFORMATION
  Report Type: Spontaneous
  Country: US (occurrence: None)
  Receive Date: 20221014
  Receipt Date: 20221014
  Transmission Date: 20230113
  Serious: No
  Sender: FDA-Public Use
  Company Number: None

PATIENT
  Age: 74 Year
  Sex: Female

DRUGS (1)
  1. ADBRY [Suspect]
     Active Substance: TRALOKINUMAB-LDRM
     Indication: Dermatitis atopic
     Dosage: INJECT 600MG (2 SYRINGES) SUBCUTANEOUSLY  ON DAY 1,  THEN 300MG (1 SYRINGE)  EVERY 2 WEEKS 2 STARTIN
     Route: 058
     Dates: start: 202208

REACTIONS (1)
  - Malaise [None]
